FAERS Safety Report 8281987 (Version 5)
Quarter: 2013Q2

REPORT INFORMATION
  Report Type: Spontaneous
  Country: US (occurrence: US)
  Receive Date: 20111209
  Receipt Date: 20130405
  Transmission Date: 20140414
  Serious: Yes (Hospitalization, Other)
  Sender: FDA-Public Use
  Company Number: US-ROCHE-1019493

PATIENT
  Sex: Male
  Weight: 102.15 kg

DRUGS (2)
  1. ACCUTANE [Suspect]
     Indication: ACNE
     Route: 065
     Dates: start: 19910501, end: 19911031
  2. ACCUTANE [Suspect]
     Route: 065
     Dates: start: 1990

REACTIONS (6)
  - Colitis ulcerative [Unknown]
  - Crohn^s disease [Unknown]
  - Inflammatory bowel disease [Unknown]
  - Depression [Unknown]
  - Injury [Unknown]
  - Fracture [Unknown]
